FAERS Safety Report 10246274 (Version 1)
Quarter: 2014Q2

REPORT INFORMATION
  Report Type: Spontaneous
  Country: US (occurrence: US)
  Receive Date: 20140619
  Receipt Date: 20140619
  Transmission Date: 20141212
  Serious: Yes (Other)
  Sender: FDA-Public Use
  Company Number: US-SUN PHARMACEUTICAL INDUSTRIES LTD-2014SUN01320

PATIENT
  Age: 57 Year
  Sex: Female

DRUGS (1)
  1. DOXORUBICIN HYDROCHLORIDE LIPOSOME INJECTION USP 2MG/ML [Suspect]
     Indication: BREAST CANCER
     Dosage: 85 MG (40 MG/M2) OF LIPOSOMAL DOXORUBICIN IN 250 ML OF D5W (5% GLUCOSE SOLUTION)
     Route: 065

REACTIONS (2)
  - Encephalopathy [Recovered/Resolved]
  - Infusion related reaction [None]
